FAERS Safety Report 15677028 (Version 2)
Quarter: 2019Q1

REPORT INFORMATION
  Report Type: Spontaneous
  Country: US (occurrence: AR)
  Receive Date: 20181130
  Receipt Date: 20190211
  Transmission Date: 20190417
  Serious: Yes (Other)
  Sender: FDA-Public Use
  Company Number: US-BAUSCH-BL-2018-033230

PATIENT
  Age: 64 Year
  Sex: Female

DRUGS (9)
  1. LITHIUM. [Concomitant]
     Active Substance: LITHIUM
     Indication: BIPOLAR DISORDER
     Dosage: STARTED PRIOR TO 2010
  2. QUETIAPINE. [Concomitant]
     Active Substance: QUETIAPINE
     Dosage: TITRATED TO 150 MG/DAY IN A MONTH
  3. VENLAFAXINE [Suspect]
     Active Substance: VENLAFAXINE HYDROCHLORIDE
     Indication: PERSISTENT DEPRESSIVE DISORDER
     Route: 065
  4. LORAZEPAM. [Suspect]
     Active Substance: LORAZEPAM
     Route: 065
  5. RISPERIDONE. [Concomitant]
     Active Substance: RISPERIDONE
     Indication: PERSISTENT DEPRESSIVE DISORDER
     Dosage: STARTED PRIOR TO 2010
  6. LORAZEPAM. [Suspect]
     Active Substance: LORAZEPAM
     Indication: CATATONIA
     Route: 065
  7. QUETIAPINE. [Concomitant]
     Active Substance: QUETIAPINE
     Indication: BIPOLAR DISORDER
     Dosage: STARTED PRIOR TO 2010
  8. LORAZEPAM. [Suspect]
     Active Substance: LORAZEPAM
     Dosage: AFTER WITHDRAWAL CATATONIA PATIENT REMAINED STABLE AND CONTINUED WITH LORAZEPAM
     Route: 065
  9. LORAZEPAM. [Suspect]
     Active Substance: LORAZEPAM
     Route: 065

REACTIONS (2)
  - Withdrawal catatonia [Recovered/Resolved]
  - Mania [Recovered/Resolved]
